FAERS Safety Report 7764221-2 (Version None)
Quarter: 2011Q3

REPORT INFORMATION
  Report Type: 
  Country: None (occurrence: None)
  Receive Date: 20110921
  Receipt Date: 20110913
  Transmission Date: 20111222
  Serious: Yes (Hospitalization, Other)
  Sender: FDA-Public Use
  Company Number: US-AMGEN-USASP2011039567

PATIENT
  Age: 15 Year
  Sex: Male

DRUGS (19)
  1. NPLATE [Suspect]
  2. NPLATE [Suspect]
  3. RITUXIMAB [Concomitant]
  4. NPLATE [Suspect]
     Indication: MYELODYSPLASTIC SYNDROME
     Dosage: 5 MUG/KG, UNK
     Dates: start: 20110105
  5. ACYCLOVIR [Concomitant]
     Dosage: 800 MG, Q12H
  6. LASIX [Concomitant]
     Indication: HYPERTENSION
  7. CORTICOSTEROIDS [Concomitant]
  8. IVIGLOB-EX [Concomitant]
  9. POTASSIUM CHLORIDE [Concomitant]
     Dosage: 10 MEQ, UNK
  10. ETHAMBUTOL HYDROCHLORIDE [Concomitant]
     Dosage: 400 MG, UNK
  11. NPLATE [Suspect]
  12. DRONABINOL [Concomitant]
     Dosage: UNK
  13. TACROLIMUS [Concomitant]
     Dosage: UNK
     Dates: end: 20110725
  14. PREDNISONE [Concomitant]
  15. AZITHROMYCIN [Concomitant]
     Dosage: 250 MG, UNK
  16. MORPHINE [Concomitant]
     Dosage: 15 MG, Q12H
  17. BICITRA                            /00586801/ [Concomitant]
     Dosage: 10 ML, Q12H
  18. LISINOPRIL [Concomitant]
     Dosage: 5 MG, QD
  19. MIRTAZAPINE [Concomitant]
     Dosage: 300 MG, UNK

REACTIONS (22)
  - LYMPHADENOPATHY [None]
  - NEPHROTIC SYNDROME [None]
  - SPLENOMEGALY [None]
  - PYREXIA [None]
  - HYPOTENSION [None]
  - VOMITING [None]
  - BONE MARROW DISORDER [None]
  - PLEURAL EFFUSION [None]
  - HOSPITALISATION [None]
  - PROTEINURIA [None]
  - CHRONIC GRAFT VERSUS HOST DISEASE [None]
  - HEPATOMEGALY [None]
  - NAUSEA [None]
  - PLASMACYTOMA [None]
  - RENAL FAILURE [None]
  - PANCYTOPENIA [None]
  - PERICARDIAL EFFUSION [None]
  - ASCITES [None]
  - EPSTEIN-BARR VIRUS ASSOCIATED LYMPHOPROLIFERATIVE DISORDER [None]
  - BACTERAEMIA [None]
  - NEPHRITIS [None]
  - ATELECTASIS [None]
